FAERS Safety Report 4547084-8 (Version None)
Quarter: 2005Q1

REPORT INFORMATION
  Report Type: 
  Country: None (occurrence: None)
  Receive Date: 20050105
  Receipt Date: 20041222
  Transmission Date: 20050727
  Serious: Yes (Hospitalization)
  Sender: FDA-Public Use
  Company Number: US014487

PATIENT
  Age: 42 Year
  Sex: Female

DRUGS (4)
  1. GABITRIL [Suspect]
     Indication: MUSCLE SPASMS
     Dosage: 4 MG QHS ORAL
     Route: 048
     Dates: start: 20041129, end: 20041204
  2. GABITRIL [Suspect]
     Indication: MUSCLE SPASMS
     Dosage: 8 MG QHS ORAL
     Route: 048
     Dates: start: 20041205, end: 20041211
  3. GABITRIL [Suspect]
     Indication: MUSCLE SPASMS
     Dosage: 12 MG QHS ORAL
     Route: 048
     Dates: start: 20041212, end: 20041218
  4. GABITRIL [Suspect]
     Indication: MUSCLE SPASMS
     Dosage: 16 MG QHS ORAL
     Route: 048
     Dates: start: 20041219, end: 20041221

REACTIONS (9)
  - APHASIA [None]
  - ASTHENIA [None]
  - DIZZINESS [None]
  - DYSKINESIA [None]
  - DYSPHEMIA [None]
  - HYPOAESTHESIA [None]
  - PAIN IN EXTREMITY [None]
  - TREMOR [None]
  - VAGINAL DISORDER [None]
